FAERS Safety Report 9580454 (Version 2)
Quarter: 2014Q3

REPORT INFORMATION
  Report Type: Spontaneous
  Country: IL (occurrence: IL)
  Receive Date: 20131002
  Receipt Date: 20140825
  Transmission Date: 20150326
  Serious: Yes (Death, Other)
  Sender: FDA-Public Use
  Company Number: IL-009507513-1310ISR000707

PATIENT
  Age: 27 Year
  Sex: Female

DRUGS (1)
  1. MERCILON [Suspect]
     Active Substance: DESOGESTREL\ETHINYL ESTRADIOL
     Indication: CONTRACEPTION
     Dosage: UNK
     Route: 048
     Dates: start: 2009

REACTIONS (9)
  - Cardiac arrest [Fatal]
  - Gastrointestinal disorder [Unknown]
  - Syncope [Unknown]
  - Pulmonary embolism [Fatal]
  - Viral pericarditis [Unknown]
  - Hepatic enzyme increased [Unknown]
  - Cardiac arrest [Unknown]
  - Loss of consciousness [Unknown]
  - Resuscitation [Unknown]

NARRATIVE: CASE EVENT DATE: 201309
